FAERS Safety Report 22041128 (Version 3)
Quarter: 2023Q2

REPORT INFORMATION
  Report Type: Report from Study
  Country: US (occurrence: US)
  Receive Date: 20230227
  Receipt Date: 20230504
  Transmission Date: 20230721
  Serious: Yes (Other)
  Sender: FDA-Public Use
  Company Number: US-TAKEDA-2022TUS029250

PATIENT
  Age: 62 Year
  Sex: Male
  Weight: 79.79 kg

DRUGS (2)
  1. MOBOCERTINIB [Suspect]
     Active Substance: MOBOCERTINIB
     Indication: Lung neoplasm malignant
     Dosage: 160 MILLIGRAM, QD
     Route: 048
     Dates: start: 20220407
  2. MOBOCERTINIB [Suspect]
     Active Substance: MOBOCERTINIB
     Dosage: 160 MILLIGRAM, QD
     Route: 048
     Dates: start: 20220412

REACTIONS (13)
  - Peripheral artery occlusion [Unknown]
  - Thrombosis [Unknown]
  - Flatulence [Unknown]
  - Eye irritation [Recovering/Resolving]
  - Lacrimation increased [Unknown]
  - Pulmonary mass [Recovering/Resolving]
  - Acne [Unknown]
  - Pruritus allergic [Not Recovered/Not Resolved]
  - Dehydration [Not Recovered/Not Resolved]
  - Rhinorrhoea [Unknown]
  - Dry skin [Unknown]
  - Diarrhoea [Recovering/Resolving]
  - Ear infection [Unknown]

NARRATIVE: CASE EVENT DATE: 20220429
